APPROVED DRUG PRODUCT: CITALOPRAM HYDROBROMIDE
Active Ingredient: CITALOPRAM HYDROBROMIDE
Strength: EQ 10MG BASE/5ML
Dosage Form/Route: SOLUTION;ORAL
Application: A201450 | Product #001 | TE Code: AA
Applicant: HETERO LABS LTD UNIT III
Approved: Dec 15, 2015 | RLD: No | RS: No | Type: RX